FAERS Safety Report 8152797-5 (Version None)
Quarter: 2012Q1

REPORT INFORMATION
  Report Type: 
  Country: None (occurrence: None)
  Receive Date: 20120221
  Receipt Date: 20111101
  Transmission Date: 20120608
  Serious: Yes (Other)
  Sender: FDA-Public Use
  Company Number: CA-JNJFOC-20120107497

PATIENT
  Sex: Female
  Weight: 71 kg

DRUGS (5)
  1. ASACOL [Concomitant]
     Route: 065
  2. REMICADE [Suspect]
     Indication: CROHN'S DISEASE
     Route: 042
     Dates: start: 20111101
  3. IMURAN [Concomitant]
     Route: 065
  4. PREDNISONE [Concomitant]
     Route: 065
  5. HYDROCORTISONE [Concomitant]
     Indication: PREMEDICATION
     Route: 042

REACTIONS (4)
  - SYNCOPE [None]
  - INFUSION RELATED REACTION [None]
  - HEADACHE [None]
  - DIZZINESS [None]
